FAERS Safety Report 5980075-9 (Version None)
Quarter: 2008Q4

REPORT INFORMATION
  Report Type: 
  Country: None (occurrence: None)
  Receive Date: 20081128
  Receipt Date: 20081113
  Transmission Date: 20090506
  Serious: Yes (Hospitalization)
  Sender: FDA-Public Use
  Company Number: 592680

PATIENT
  Age: 73 Year
  Sex: Male

DRUGS (6)
  1. DILUTOL (*TORASEMIDE/*TORASEMIDE SODIUM) 10 MG [Suspect]
     Indication: ACUTE MYOCARDIAL INFARCTION
     Dosage: ORAL
     Route: 048
     Dates: start: 20080109, end: 20080116
  2. COROPRES (CARVEDILOL) 6.25 MG [Suspect]
     Indication: MYOCARDIAL INFARCTION
     Dosage: ORAL
     Route: 048
     Dates: start: 20080109, end: 20080116
  3. CARDURAN NEO (DOXAZOSIN MESYLATE) [Concomitant]
  4. COZAAR [Concomitant]
  5. DIANBEN (METFORMIN) [Concomitant]
  6. LANTUS [Concomitant]

REACTIONS (2)
  - HYPOGLYCAEMIA [None]
  - RENAL FAILURE ACUTE [None]
